FAERS Safety Report 9652157 (Version 1)
Quarter: 2013Q4

REPORT INFORMATION
  Report Type: Spontaneous
  Country: US (occurrence: None)
  Receive Date: 20131028
  Receipt Date: 20131028
  Transmission Date: 20140711
  Serious: Yes (Other)
  Sender: FDA-Public Use
  Company Number: None

PATIENT
  Age: 52 Year
  Sex: Female
  Weight: 96.16 kg

DRUGS (6)
  1. CLONAZEPAM [Suspect]
     Indication: AGITATION
     Route: 048
     Dates: start: 20120911, end: 20120912
  2. CLONAZEPAM [Suspect]
     Route: 048
     Dates: start: 20120911, end: 20120912
  3. KLONOPIN [Concomitant]
  4. WELLBUTRIN [Concomitant]
  5. SEROQUEL [Concomitant]
  6. NEURONTIN [Concomitant]

REACTIONS (5)
  - Rash [None]
  - Headache [None]
  - Dyspnoea [None]
  - Throat tightness [None]
  - Irritability [None]
